FAERS Safety Report 16849221 (Version 1)
Quarter: 2019Q4

REPORT INFORMATION
  Report Type: Spontaneous
  Country: US (occurrence: US)
  Receive Date: 20190924
  Receipt Date: 20190924
  Transmission Date: 20200122
  Serious: No
  Sender: FDA-Public Use
  Company Number: None

PATIENT
  Age: 35 Year
  Sex: Female
  Weight: 58.5 kg

DRUGS (2)
  1. UNISOM SLEEPTABS [Suspect]
     Active Substance: DOXYLAMINE SUCCINATE
  2. VITAMIN B6 [Suspect]
     Active Substance: PYRIDOXINE HYDROCHLORIDE
     Indication: MORNING SICKNESS
     Route: 048

REACTIONS (7)
  - Sleep disorder [None]
  - Diarrhoea [None]
  - Poor quality sleep [None]
  - Drug ineffective [None]
  - Gastrooesophageal reflux disease [None]
  - Dysgeusia [None]
  - Abdominal discomfort [None]

NARRATIVE: CASE EVENT DATE: 20190919
